FAERS Safety Report 18907952 (Version 1)
Quarter: 2021Q1

REPORT INFORMATION
  Report Type: Spontaneous
  Country: US (occurrence: US)
  Receive Date: 20210218
  Receipt Date: 20210218
  Transmission Date: 20210420
  Serious: Yes (Death)
  Sender: FDA-Public Use
  Company Number: US-ROCHE-2771823

PATIENT
  Age: 82 Year
  Sex: Male

DRUGS (1)
  1. ZELBORAF [Suspect]
     Active Substance: VEMURAFENIB
     Indication: HAIRY CELL LEUKAEMIA
     Route: 048
     Dates: start: 20200818

REACTIONS (1)
  - Death [Fatal]
